FAERS Safety Report 9628803 (Version 3)
Quarter: 2014Q2

REPORT INFORMATION
  Report Type: Report from Study
  Country: CO (occurrence: CO)
  Receive Date: 20131017
  Receipt Date: 20140626
  Transmission Date: 20141212
  Serious: Yes (Other)
  Sender: FDA-Public Use
  Company Number: CO-ROCHE-1289888

PATIENT
  Age: 62 Year
  Sex: Female
  Weight: 80 kg

DRUGS (4)
  1. LUCENTIS [Suspect]
     Indication: GLAUCOMA
     Route: 050
  2. LUCENTIS [Suspect]
     Indication: MACULAR DEGENERATION
  3. CAPTOPRIL [Concomitant]
     Indication: HYPERTENSION
     Route: 048
  4. INSULIN [Concomitant]

REACTIONS (2)
  - Diabetic foot [Recovered/Resolved]
  - Malaise [Unknown]
